FAERS Safety Report 10172515 (Version 6)
Quarter: 2015Q2

REPORT INFORMATION
  Report Type: Report from Study
  Country: US (occurrence: US)
  Receive Date: 20140515
  Receipt Date: 20150504
  Transmission Date: 20150821
  Serious: Yes (Other)
  Sender: FDA-Public Use
  Company Number: US-SA-2013SA117611

PATIENT
  Age: 47 Year
  Sex: Female

DRUGS (3)
  1. OXYCONTIN [Concomitant]
     Active Substance: OXYCODONE HYDROCHLORIDE
  2. PERCOCET [Concomitant]
     Active Substance: ACETAMINOPHEN\OXYCODONE HYDROCHLORIDE
     Dosage: FREQ: TID-QID
  3. AUBAGIO [Suspect]
     Active Substance: TERIFLUNOMIDE
     Indication: MULTIPLE SCLEROSIS
     Route: 048
     Dates: start: 20130124

REACTIONS (15)
  - Joint instability [Unknown]
  - Drug ineffective [Unknown]
  - Hypertension [Unknown]
  - Nausea [Unknown]
  - Depressed mood [Unknown]
  - Tremor [Unknown]
  - Gait disturbance [Unknown]
  - Memory impairment [Unknown]
  - Headache [Unknown]
  - Sleep disorder [Unknown]
  - Cardiac disorder [Unknown]
  - Walking aid user [Unknown]
  - Pain [Unknown]
  - Multiple sclerosis relapse [Not Recovered/Not Resolved]
  - Pain in extremity [Unknown]

NARRATIVE: CASE EVENT DATE: 201504
